FAERS Safety Report 7483040-8 (Version None)
Quarter: 2011Q2

REPORT INFORMATION
  Report Type: 
  Country: None (occurrence: None)
  Receive Date: 20110516
  Receipt Date: 20091120
  Transmission Date: 20111010
  Serious: Yes (Death, Other)
  Sender: FDA-Public Use
  Company Number: US-BAYER-200940885NA

PATIENT
  Age: 77 Year
  Sex: Female
  Weight: 58 kg

DRUGS (23)
  1. ACETYLSALICYLIC ACID SRT [Concomitant]
     Indication: ANALGESIC THERAPY
     Dosage: 325 MG, UNK
     Route: 048
     Dates: start: 20031110, end: 20031120
  2. NITROGLYCERIN [Concomitant]
     Indication: VASODILATION PROCEDURE
     Dosage: 0.2 -0.4 MG
     Route: 060
     Dates: start: 20031110, end: 20031120
  3. EPHEDRINE SUL CAP [Concomitant]
     Indication: PRODUCT USED FOR UNKNOWN INDICATION
     Dosage: 20 MG, UNK
     Route: 042
     Dates: start: 20031111, end: 20031111
  4. AZTREONAM [Concomitant]
     Indication: PRODUCT USED FOR UNKNOWN INDICATION
     Dosage: 1000 MG, UNK
     Route: 042
     Dates: start: 20031111, end: 20031111
  5. VANCOMYCIN [Concomitant]
     Indication: PRODUCT USED FOR UNKNOWN INDICATION
     Dosage: 500 - 1000 MG
     Route: 042
     Dates: start: 20031111, end: 20031111
  6. FENTANYL [Concomitant]
     Indication: PRODUCT USED FOR UNKNOWN INDICATION
     Dosage: 2000 MICROGRAM
     Route: 042
     Dates: start: 20031111, end: 20031111
  7. METOPROLOL SUCCINATE [Concomitant]
     Indication: PRODUCT USED FOR UNKNOWN INDICATION
     Dosage: 5 MG, UNK
     Route: 042
     Dates: start: 20031111, end: 20031111
  8. VECURONIUM BROMIDE [Concomitant]
     Indication: PRODUCT USED FOR UNKNOWN INDICATION
     Dosage: 10 MG, UNK
     Route: 042
     Dates: start: 20031111, end: 20031111
  9. CLINDAMYCIN [Concomitant]
     Indication: PRODUCT USED FOR UNKNOWN INDICATION
     Dosage: 600 MG, UNK
     Dates: start: 20031111, end: 20031111
  10. PROTAMINE SULFATE [Concomitant]
     Indication: PRODUCT USED FOR UNKNOWN INDICATION
     Dosage: 75 MG, UNK
     Route: 042
     Dates: start: 20031111, end: 20031111
  11. FUROSEMIDE [Concomitant]
     Dosage: 20 - 40 MG
     Route: 048
     Dates: start: 20031109, end: 20031120
  12. HEPARIN [Concomitant]
     Indication: PRODUCT USED FOR UNKNOWN INDICATION
     Dosage: 11-20 K-UNITS
     Route: 042
     Dates: start: 20031111, end: 20031111
  13. TRASYLOL [Suspect]
     Indication: CORONARY ARTERY BYPASS
     Dosage: UNK
     Route: 042
     Dates: start: 20031111
  14. AMLODIPINE BESYLATE [Concomitant]
     Indication: HYPERTENSION
     Dosage: 10 MG, UNK
     Route: 048
     Dates: start: 20031109, end: 20031120
  15. PLATELETS [Concomitant]
     Dosage: UNK
     Route: 042
     Dates: start: 20031111, end: 20031112
  16. MIDAZOLAM HCL [Concomitant]
     Indication: PRODUCT USED FOR UNKNOWN INDICATION
     Dosage: 4 MG - 6 MG
     Route: 042
     Dates: start: 20031111, end: 20031111
  17. FUROSEMIDE [Concomitant]
     Indication: DIURETIC THERAPY
     Dosage: 20 - 40 MG
     Route: 042
     Dates: start: 20031109, end: 20031120
  18. PROSTIGMIN BROMIDE [Concomitant]
     Indication: PRODUCT USED FOR UNKNOWN INDICATION
     Dosage: 3.6 MG, UNK
     Route: 042
     Dates: start: 20031111, end: 20031111
  19. SIMVASTATIN [Concomitant]
     Indication: BLOOD CHOLESTEROL DECREASED
     Dosage: 40 MG, UNK
     Route: 048
     Dates: start: 20031109, end: 20031120
  20. ATROPINE [Concomitant]
     Indication: PRODUCT USED FOR UNKNOWN INDICATION
     Dosage: 0.8 MG, UNK
     Route: 042
     Dates: start: 20031111, end: 20031111
  21. NITROGLYCERIN [Concomitant]
     Indication: PRODUCT USED FOR UNKNOWN INDICATION
     Dosage: 1.769-2.5209 MG
     Route: 042
     Dates: start: 20031111, end: 20031111
  22. LABETALOL [Concomitant]
     Indication: PRODUCT USED FOR UNKNOWN INDICATION
     Dosage: 6 MG, UNK
     Route: 042
     Dates: start: 20031111, end: 20031111
  23. ETOMIDATE [Concomitant]
     Indication: PRODUCT USED FOR UNKNOWN INDICATION
     Dosage: 4-10 MG
     Route: 042
     Dates: start: 20031111, end: 20031111

REACTIONS (12)
  - PAIN [None]
  - MULTI-ORGAN FAILURE [None]
  - ANXIETY [None]
  - FEAR [None]
  - INJURY [None]
  - ANHEDONIA [None]
  - DISABILITY [None]
  - RENAL FAILURE [None]
  - DEATH [None]
  - RENAL INJURY [None]
  - UNEVALUABLE EVENT [None]
  - DEPRESSION [None]
